FAERS Safety Report 26092605 (Version 1)
Quarter: 2025Q4

REPORT INFORMATION
  Report Type: Spontaneous
  Country: EU (occurrence: EU)
  Receive Date: 20251126
  Receipt Date: 20251126
  Transmission Date: 20260117
  Serious: No
  Sender: ALKEM
  Company Number: EU-ALKEM LABORATORIES LIMITED-CN-ALKEM-2025-07309

PATIENT
  Age: 13 Year
  Sex: Female

DRUGS (2)
  1. MYCOPHENOLATE MOFETIL [Suspect]
     Active Substance: MYCOPHENOLATE MOFETIL
     Indication: Stiff skin syndrome
     Dosage: 1 GRAM, BID, (EVERY 12 HOURS)
     Route: 065
  2. LOSARTAN [Concomitant]
     Active Substance: LOSARTAN
     Indication: Stiff skin syndrome
     Dosage: 12.5 MG/DAY
     Route: 065

REACTIONS (1)
  - Therapy partial responder [Unknown]
